FAERS Safety Report 12892170 (Version 1)
Quarter: 2016Q4

REPORT INFORMATION
  Report Type: Spontaneous
  Country: US (occurrence: US)
  Receive Date: 20161028
  Receipt Date: 20161028
  Transmission Date: 20170207
  Serious: Yes (Other)
  Sender: FDA-Public Use
  Company Number: US-TEVA-707477USA

PATIENT
  Age: 65 Year
  Sex: Male
  Weight: 86.26 kg

DRUGS (1)
  1. AMPHETAMINE W/DEXTROAMPHETAMINE [Suspect]
     Active Substance: AMPHETAMINE SULFATE\DEXTROAMPHETAMINE
     Route: 065
     Dates: start: 201610, end: 201610

REACTIONS (4)
  - Dysarthria [Unknown]
  - Drug ineffective [Unknown]
  - Feeling drunk [Unknown]
  - Mental impairment [Unknown]

NARRATIVE: CASE EVENT DATE: 201610
